FAERS Safety Report 4303373-3 (Version None)
Quarter: 2004Q1

REPORT INFORMATION
  Report Type: 
  Country: None (occurrence: None)
  Receive Date: 20040223
  Receipt Date: 20040216
  Transmission Date: 20041129
  Serious: Yes (Hospitalization)
  Sender: FDA-Public Use
  Company Number: FRWYE499608JAN04

PATIENT
  Age: 68 Year
  Sex: Female

DRUGS (13)
  1. OXAZEPAM [Suspect]
     Dosage: ORAL
     Route: 048
     Dates: start: 20030615, end: 20031202
  2. AMAREL (GLIMEPIRIDE, 0) [Suspect]
     Dosage: ORAL
     Route: 048
     Dates: start: 20030615, end: 20031202
  3. HYTACAND (CANDESARTAN CILEXETIL/HYDROCHLOROTHIAZIDE) [Suspect]
     Dosage: ORAL
     Route: 048
     Dates: start: 20030615, end: 20031202
  4. IBUPROFEN [Suspect]
     Dosage: ORAL
     Route: 048
     Dates: start: 20031127, end: 20031202
  5. LAMALINE (BELLADONNA EXTRACT/CAFFEINE/OPIUM TINCTURE/PARACETAMOL, 0) [Suspect]
     Dosage: ORAL
     Route: 048
     Dates: start: 20030615, end: 20031202
  6. NIDREL (NITRENDIPINE, 0) [Suspect]
     Dosage: ORAL
     Route: 048
     Dates: start: 20030615, end: 20031202
  7. CLONAZEPAM [Suspect]
     Dosage: ORAL
     Route: 048
     Dates: start: 20311114, end: 20031202
  8. SEROPRAM (CITALOPRAM HYDROBROMIDE) [Suspect]
     Dosage: ORAL
     Route: 048
     Dates: start: 20030615, end: 20031202
  9. TAHOR (ATORVASTATIN, 0) [Suspect]
     Dosage: ORAL
     Route: 048
     Dates: start: 20030615, end: 20031202
  10. TELFAST (FEXOFENADINE, 0) [Suspect]
     Dosage: ORAL
     Route: 048
     Dates: start: 20030615, end: 20031202
  11. THIOCOLOCHICOSIDE (THIOCOLCHICOSIDE, 0) [Suspect]
     Dosage: ORAL
     Route: 048
     Dates: start: 20030615, end: 20031202
  12. TILCOTIL (TENOXICAM, 0) [Suspect]
     Dosage: ORAL
     Route: 048
     Dates: start: 20030615, end: 20031202
  13. TROSPIUM CHLORIDE [Suspect]
     Dosage: ORAL
     Route: 049
     Dates: start: 20031103, end: 20031202

REACTIONS (5)
  - ACUTE PRERENAL FAILURE [None]
  - ANURIA [None]
  - HAEMORRHAGE [None]
  - HYDRONEPHROSIS [None]
  - THROMBOCYTOPENIA [None]
